FAERS Safety Report 15554435 (Version 1)
Quarter: 2018Q4

REPORT INFORMATION
  Report Type: Spontaneous
  Country: GB (occurrence: GB)
  Receive Date: 20181026
  Receipt Date: 20181026
  Transmission Date: 20190205
  Serious: Yes (Life-Threatening, Other)
  Sender: FDA-Public Use
  Company Number: GB-AMGEN-GBRSP2018150546

PATIENT
  Sex: Female

DRUGS (1)
  1. AIMOVIG [Suspect]
     Active Substance: ERENUMAB-AOOE
     Indication: MIGRAINE
     Dosage: UNK
     Route: 065
     Dates: start: 20181018

REACTIONS (5)
  - Suicidal ideation [Unknown]
  - Dyspnoea [Unknown]
  - Vertigo [Not Recovered/Not Resolved]
  - Migraine [Unknown]
  - Heart rate increased [Unknown]
